FAERS Safety Report 23265332 (Version 3)
Quarter: 2023Q4

REPORT INFORMATION
  Report Type: Spontaneous
  Country: US (occurrence: US)
  Receive Date: 20231206
  Receipt Date: 20231227
  Transmission Date: 20240110
  Serious: Yes (Hospitalization, Other)
  Sender: FDA-Public Use
  Company Number: US-AMGEN-USASP2023213563

PATIENT
  Age: 61 Year
  Sex: Male

DRUGS (3)
  1. REPATHA [Suspect]
     Active Substance: EVOLOCUMAB
     Indication: Blood cholesterol abnormal
     Dosage: 140 MILLIGRAM, Q2WK
     Route: 065
     Dates: start: 202306, end: 202309
  2. ASPIRIN [Concomitant]
     Active Substance: ASPIRIN
     Indication: Cardiac disorder
     Dosage: 281 MILLIGRAM
     Route: 065
  3. METOPROLOL [Concomitant]
     Active Substance: METOPROLOL
     Indication: Cardiac disorder
     Dosage: 50 MILLIGRAM
     Route: 065

REACTIONS (12)
  - Diabetes mellitus [Unknown]
  - Diverticulitis [Unknown]
  - Unevaluable event [Unknown]
  - Chest pain [Unknown]
  - Blood cholesterol abnormal [Unknown]
  - Enzyme level abnormal [Unknown]
  - Illness [Unknown]
  - Anal incontinence [Unknown]
  - Feeding disorder [Unknown]
  - Vomiting [Unknown]
  - Gait disturbance [Unknown]
  - Drug ineffective [Unknown]

NARRATIVE: CASE EVENT DATE: 20230101
